FAERS Safety Report 7520930-1 (Version None)
Quarter: 2011Q2

REPORT INFORMATION
  Report Type: 
  Country: None (occurrence: None)
  Receive Date: 20110603
  Receipt Date: 20101130
  Transmission Date: 20111010
  Serious: No
  Sender: FDA-Public Use
  Company Number: US-BAYER-2010-000003

PATIENT
  Age: 50 Year
  Sex: Female

DRUGS (2)
  1. VALIUM [Concomitant]
     Indication: VERTIGO
  2. BETASERON [Suspect]
     Indication: RELAPSING-REMITTING MULTIPLE SCLEROSIS
     Dosage: UNK
     Route: 058
     Dates: start: 20100516, end: 20101026

REACTIONS (4)
  - ANGER [None]
  - FATIGUE [None]
  - DEPRESSION [None]
  - SLUGGISHNESS [None]
